FAERS Safety Report 4704366-4 (Version None)
Quarter: 2005Q2

REPORT INFORMATION
  Report Type: 
  Country: None (occurrence: None)
  Receive Date: 20050628
  Receipt Date: 20050620
  Transmission Date: 20051028
  Serious: Yes (Disabling)
  Sender: FDA-Public Use
  Company Number: 200510598BVD

PATIENT
  Age: 67 Year
  Sex: Male
  Weight: 75 kg

DRUGS (4)
  1. AVELOX [Suspect]
     Indication: MYCOPLASMA INFECTION
     Dosage: 400 MG, TOTAL DAILY, ORAL
     Route: 048
     Dates: start: 20050101, end: 20050601
  2. CONCOR COR [Concomitant]
  3. ATROVENT [Concomitant]
  4. RIFAMPICIN [Concomitant]

REACTIONS (4)
  - ARRHYTHMIA [None]
  - CONDITION AGGRAVATED [None]
  - MYCOPLASMA INFECTION [None]
  - POLYNEUROPATHY [None]
